FAERS Safety Report 21140762 (Version 1)
Quarter: 2022Q3

REPORT INFORMATION
  Report Type: Spontaneous
  Country: TW (occurrence: TW)
  Receive Date: 20220728
  Receipt Date: 20220728
  Transmission Date: 20221027
  Serious: Yes (Other)
  Sender: FDA-Public Use
  Company Number: TW-009507513-2207TWN007305

PATIENT
  Age: 73 Year
  Sex: Female
  Weight: 40 kg

DRUGS (6)
  1. DELSTRIGO [Suspect]
     Active Substance: DORAVIRINE\LAMIVUDINE\TENOFOVIR DISOPROXIL FUMARATE
     Dosage: UNK
     Dates: start: 20220611
  2. CEFOPERAZONE SODIUM\SULBACTAM SODIUM [Concomitant]
     Active Substance: CEFOPERAZONE SODIUM\SULBACTAM SODIUM
     Dosage: UNK
     Dates: end: 20220604
  3. CEFTAROLINE FOSAMIL [Concomitant]
     Active Substance: CEFTAROLINE FOSAMIL
     Dosage: 600 MG (1 VIAL), EVERY 12 HOURS (Q12H)
     Dates: start: 20220604, end: 20220610
  4. MEROPENEM [Concomitant]
     Active Substance: MEROPENEM
     Dosage: 1000 MG (4VIALS), EVERY 8 HOURS (Q8H), INTRAVENOUSLY (IV)
     Route: 042
     Dates: start: 20220610, end: 20220615
  5. TARGOCID [Concomitant]
     Active Substance: TEICOPLANIN
     Dosage: 400 MG (1 VIAL), EVERY 12 HOURS (Q12H), INTRAVENOUSLY (IV)
     Route: 042
     Dates: start: 20220610, end: 20220611
  6. ZYVOX [Concomitant]
     Active Substance: LINEZOLID
     Dosage: 1 VIAL, EVERY 12 HOURS (Q12H)
     Route: 042
     Dates: start: 20220611, end: 20220614

REACTIONS (14)
  - Bacillus infection [Unknown]
  - Mycobacterium abscessus infection [Unknown]
  - Aortic valve incompetence [Unknown]
  - Glycosylated haemoglobin increased [Unknown]
  - Carbohydrate antigen 125 increased [Unknown]
  - Bacterial infection [Unknown]
  - Uterine leiomyoma [Unknown]
  - Pelvic fluid collection [Unknown]
  - Antinuclear antibody positive [Unknown]
  - Ventricular extrasystoles [Unknown]
  - Supraventricular extrasystoles [Unknown]
  - Candida infection [Unknown]
  - Diarrhoea [Unknown]
  - Off label use [Unknown]

NARRATIVE: CASE EVENT DATE: 20220601
